FAERS Safety Report 10979183 (Version 3)
Quarter: 2015Q3

REPORT INFORMATION
  Report Type: Spontaneous
  Country: US (occurrence: US)
  Receive Date: 20150402
  Receipt Date: 20150917
  Transmission Date: 20151125
  Serious: No
  Sender: FDA-Public Use
  Company Number: US-009507513-1503USA015016

PATIENT
  Sex: Male

DRUGS (2)
  1. PROPECIA [Suspect]
     Active Substance: FINASTERIDE
     Indication: ANDROGENETIC ALOPECIA
     Dosage: 1 MG, UNK
     Route: 048
     Dates: start: 20020809, end: 20120614
  2. FINASTERIDE. [Suspect]
     Active Substance: FINASTERIDE
     Indication: ANDROGENETIC ALOPECIA
     Dosage: 1 MG, UNK
     Dates: start: 20130205, end: 20140729

REACTIONS (5)
  - Cognitive disorder [Unknown]
  - Erectile dysfunction [Unknown]
  - Chest pain [Unknown]
  - Sexual dysfunction [Unknown]
  - Depression [Unknown]

NARRATIVE: CASE EVENT DATE: 2003
